FAERS Safety Report 8725986 (Version 4)
Quarter: 2012Q4

REPORT INFORMATION
  Report Type: 
  Country: US (occurrence: US)
  Receive Date: 20120816
  Receipt Date: 20120904
  Transmission Date: 20130627
  Serious: Yes (Other)
  Sender: FDA-Public Use
  Company Number: US-PFIZER INC-2012198499

PATIENT
  Age: 49 Year
  Sex: Female
  Weight: 66.21 kg

DRUGS (22)
  1. XANAX [Suspect]
     Indication: BIPOLAR DISORDER
     Dosage: 1 mg, 4x/day
  2. XANAX [Suspect]
     Indication: PANIC ATTACK
  3. XANAX [Suspect]
     Indication: ANXIETY
  4. XANAX [Suspect]
     Indication: DEPRESSION
  5. VISTARIL [Suspect]
     Dosage: UNK
  6. LYRICA [Suspect]
     Indication: NEURALGIA
     Dosage: 50 mg, 2x/day
     Dates: start: 2012
  7. SEROQUEL [Suspect]
     Dosage: 500 mg, daily
  8. NORCO [Suspect]
     Indication: CARPAL TUNNEL SYNDROME
     Dosage: UNK
  9. NORCO [Suspect]
     Indication: BACK PAIN
  10. NORCO [Suspect]
     Indication: NECK PAIN
  11. NORCO [Suspect]
     Indication: SPINAL PAIN
  12. CYMBALTA [Suspect]
     Indication: BIPOLAR DISORDER
     Dosage: 60 mg, daily at night
     Dates: start: 2012
  13. CYMBALTA [Suspect]
     Indication: FIBROMYALGIA
  14. CYMBALTA [Suspect]
     Indication: DEPRESSION
  15. CYMBALTA [Suspect]
     Indication: PANIC ATTACK
  16. CYMBALTA [Suspect]
     Indication: ANXIETY
  17. VICODIN [Suspect]
     Indication: PAIN
     Dosage: UNK
  18. LORTAB [Suspect]
     Indication: PAIN
     Dosage: UNK
  19. AMBIEN [Concomitant]
     Dosage: UNK,2x/day
  20. CLONIDINE [Concomitant]
     Dosage: 0.1 mg, daily
  21. ZANAFLEX [Concomitant]
     Dosage: UNK
  22. RITALIN [Concomitant]
     Dosage: 10 mg, 2x/day

REACTIONS (13)
  - Bipolar disorder [Unknown]
  - Spinal disorder [Unknown]
  - Fear [Unknown]
  - Mutism [Unknown]
  - Disturbance in attention [Unknown]
  - Hallucination, visual [Unknown]
  - Hypoaesthesia [Unknown]
  - Gait disturbance [Unknown]
  - Fibromyalgia [Unknown]
  - Back pain [Unknown]
  - Feeling abnormal [Unknown]
  - Pain in extremity [Unknown]
  - Drug ineffective [Unknown]
